FAERS Safety Report 9384985 (Version 1)
Quarter: 2013Q3

REPORT INFORMATION
  Report Type: Spontaneous
  Country: US (occurrence: US)
  Receive Date: 20130705
  Receipt Date: 20130705
  Transmission Date: 20140515
  Serious: No
  Sender: FDA-Public Use
  Company Number: US-GLAXOSMITHKLINE-A1020635A

PATIENT
  Age: 29 Year
  Sex: Female

DRUGS (2)
  1. BENLYSTA [Suspect]
     Indication: SYSTEMIC LUPUS ERYTHEMATOSUS
     Dosage: 10MGK CYCLIC
     Route: 042
     Dates: start: 20110413
  2. NO CONCURRENT MEDICATION [Concomitant]

REACTIONS (2)
  - Nightmare [Recovered/Resolved]
  - Dyskinesia [Recovered/Resolved]
